FAERS Safety Report 24449424 (Version 1)
Quarter: 2024Q4

REPORT INFORMATION
  Report Type: Spontaneous
  Country: CA (occurrence: CA)
  Receive Date: 20241017
  Receipt Date: 20241017
  Transmission Date: 20250114
  Serious: Yes (Hospitalization, Other)
  Sender: AUROBINDO
  Company Number: CA-AUROBINDO-AUR-APL-2024-050681

PATIENT
  Age: 40 Year
  Sex: Male

DRUGS (2)
  1. HYDROCORTISONE [Suspect]
     Active Substance: HYDROCORTISONE
     Indication: Hypopituitarism
     Dosage: UNK
     Route: 065
  2. SALINE [Concomitant]
     Active Substance: SODIUM CHLORIDE
     Indication: Product used for unknown indication
     Dosage: 0.9 PERCENT
     Route: 042

REACTIONS (7)
  - Nausea [Unknown]
  - Vomiting [Unknown]
  - Hyponatraemia [Unknown]
  - Hypovolaemia [Unknown]
  - Mineralocorticoid deficiency [Unknown]
  - Dehydration [Unknown]
  - Treatment noncompliance [Unknown]
